FAERS Safety Report 20135512 (Version 1)
Quarter: 2021Q4

REPORT INFORMATION
  Report Type: Report from Study
  Country: BR (occurrence: BR)
  Receive Date: 20211201
  Receipt Date: 20211201
  Transmission Date: 20220303
  Serious: Yes (Other)
  Sender: FDA-Public Use
  Company Number: BR-NOVARTISPH-NVSC2021BR268542

PATIENT
  Age: 67 Year
  Sex: Female

DRUGS (1)
  1. FULVESTRANT [Suspect]
     Active Substance: FULVESTRANT
     Indication: Breast cancer in situ
     Dosage: UNK
     Route: 065
     Dates: start: 201806, end: 202101

REACTIONS (13)
  - Brain oedema [Unknown]
  - Seizure [Unknown]
  - Breast cancer in situ [Unknown]
  - Malignant neoplasm progression [Unknown]
  - Metastases to bone [Unknown]
  - Metastases to liver [Unknown]
  - Metastases to central nervous system [Unknown]
  - Bone pain [Not Recovered/Not Resolved]
  - Gait disturbance [Unknown]
  - Balance disorder [Unknown]
  - Constipation [Unknown]
  - Nausea [Unknown]
  - Somnolence [Unknown]
